FAERS Safety Report 9013331 (Version 1)
Quarter: 2013Q1

REPORT INFORMATION
  Report Type: Spontaneous
  Country: US (occurrence: None)
  Receive Date: 20130107
  Receipt Date: 20130107
  Transmission Date: 20140127
  Serious: Yes (Hospitalization)
  Sender: FDA-Public Use
  Company Number: None

PATIENT
  Age: 54 Year
  Sex: Female
  Weight: 72.58 kg

DRUGS (1)
  1. CORTISONE [Suspect]

REACTIONS (12)
  - Flushing [None]
  - Dehydration [None]
  - Dysmenorrhoea [None]
  - Uterine leiomyoma [None]
  - Menorrhagia [None]
  - Joint swelling [None]
  - Constipation [None]
  - Weight decreased [None]
  - Oropharyngeal pain [None]
  - Headache [None]
  - Fatigue [None]
  - Affective disorder [None]
